FAERS Safety Report 7978217-9 (Version None)
Quarter: 2011Q4

REPORT INFORMATION
  Report Type: 
  Country: None (occurrence: None)
  Receive Date: 20111208
  Receipt Date: 20111124
  Transmission Date: 20120403
  Serious: Yes (Hospitalization)
  Sender: FDA-Public Use
  Company Number: WAES 1111USA03783

PATIENT
  Age: 20 Year
  Sex: Female

DRUGS (7)
  1. ZIDOVUDINE [Concomitant]
  2. RETROVIR [Suspect]
     Indication: HIV INFECTION
     Dosage: 400 MG/DAILY PO
     Route: 048
     Dates: start: 20100215, end: 20100303
  3. LUTEONIN [Concomitant]
  4. FERROUS CITRATE [Concomitant]
  5. ISENTRESS [Suspect]
     Indication: HIV INFECTION
     Dosage: 800 MG/DAILY PO
     Route: 048
     Dates: start: 20100215, end: 20100303
  6. EPIVIR [Suspect]
     Indication: HIV INFECTION
     Dosage: 150 MG/BID PO
     Route: 048
     Dates: start: 20100215, end: 20100303
  7. CABERGOLINE [Concomitant]

REACTIONS (6)
  - CONDITION AGGRAVATED [None]
  - MATERNAL EXPOSURE TIMING UNSPECIFIED [None]
  - ANAEMIA [None]
  - OPERATIVE HAEMORRHAGE [None]
  - UTERINE HAEMORRHAGE [None]
  - CAESAREAN SECTION [None]
